FAERS Safety Report 6672781-8 (Version None)
Quarter: 2010Q2

REPORT INFORMATION
  Report Type: 
  Country: None (occurrence: None)
  Receive Date: 20100406
  Receipt Date: 20100323
  Transmission Date: 20101027
  Serious: Yes (Hospitalization)
  Sender: FDA-Public Use
  Company Number: 2010SP000902

PATIENT
  Age: 78 Year
  Sex: Female
  Weight: 65.3 kg

DRUGS (5)
  1. XOPENEX [Suspect]
     Indication: CHRONIC OBSTRUCTIVE PULMONARY DISEASE
     Dosage: 0.63 MG/ 3ML; PRN; INHALATION, 0.63 MG/3ML; PRN; INHALATION
     Route: 055
     Dates: end: 20090101
  2. XOPENEX [Suspect]
     Indication: CHRONIC OBSTRUCTIVE PULMONARY DISEASE
     Dosage: 0.63 MG/ 3ML; PRN; INHALATION, 0.63 MG/3ML; PRN; INHALATION
     Route: 055
     Dates: start: 20100101
  3. XOPENEX HFA [Suspect]
     Dosage: INHALATION
     Route: 055
  4. CON MEDS [Concomitant]
  5. PREV MEDS [Concomitant]

REACTIONS (2)
  - MOUTH HAEMORRHAGE [None]
  - PNEUMONIA [None]
